FAERS Safety Report 20074426 (Version 2)
Quarter: 2024Q1

REPORT INFORMATION
  Report Type: Report from Study
  Country: US (occurrence: US)
  Receive Date: 20211116
  Receipt Date: 20240320
  Transmission Date: 20240409
  Serious: Yes (Other)
  Sender: FDA-Public Use
  Company Number: US-VERTEX PHARMACEUTICALS-2021-017695

PATIENT
  Sex: Female
  Weight: 33.56 kg

DRUGS (3)
  1. KALYDECO [Suspect]
     Active Substance: IVACAFTOR
     Indication: Cystic fibrosis
     Dosage: 75 MG GRANULES IVACAFTOR
     Route: 048
     Dates: start: 20150624, end: 20180917
  2. KALYDECO [Suspect]
     Active Substance: IVACAFTOR
     Dosage: 150 MG, BID (TABLETS)
     Route: 048
     Dates: start: 20180918, end: 20201214
  3. KALYDECO [Suspect]
     Active Substance: IVACAFTOR
     Dosage: 150 MG
     Route: 048
     Dates: start: 20210329, end: 20210503

REACTIONS (1)
  - Pancreatitis [Unknown]
